FAERS Safety Report 7957281-7 (Version None)
Quarter: 2011Q4

REPORT INFORMATION
  Report Type: 
  Country: None (occurrence: None)
  Receive Date: 20111201
  Receipt Date: 20111116
  Transmission Date: 20120403
  Serious: Yes (Hospitalization)
  Sender: FDA-Public Use
  Company Number: 1000024931

PATIENT
  Age: 77 Year
  Sex: Male
  Weight: 75 kg

DRUGS (6)
  1. CRESTOR [Concomitant]
  2. SOMALGIM CARDIO (ACETYLSALICYLIC ACID) (ACETYLSALICYLIC ACID) [Concomitant]
  3. ROFLUMILAST (ROFLUMILAST) (TABLETS) [Suspect]
     Indication: CHRONIC OBSTRUCTIVE PULMONARY DISEASE
     Dosage: 1 DOSAGE FORM (1 DOSAGE FORMS, 1 IN 1 D), ORAL
     Route: 048
     Dates: start: 20110801, end: 20111001
  4. LEXAPRO (ESCITALOPRAM OXALATE) (ESCITALOPRAM OXALATE) [Concomitant]
  5. ALENIA (BUDESONIDE, FORMOTEROL FUMARATE) (BUDESONIDE, FORMOTEROL FUMAR [Concomitant]
  6. SPIRIVA (TIOTROPIUM BROMIDE) (INHALANT) (TIOTROPIUM BROMIDE) [Concomitant]

REACTIONS (13)
  - ABASIA [None]
  - MALAISE [None]
  - DIZZINESS [None]
  - GASTROINTESTINAL DISORDER [None]
  - PULMONARY EMBOLISM [None]
  - DIARRHOEA [None]
  - CONDITION AGGRAVATED [None]
  - DECREASED APPETITE [None]
  - TREMOR [None]
  - FATIGUE [None]
  - WEIGHT DECREASED [None]
  - OSTEOARTHRITIS [None]
  - ASTHENIA [None]
